FAERS Safety Report 10133362 (Version 2)
Quarter: 2014Q2

REPORT INFORMATION
  Report Type: Spontaneous
  Country: PE (occurrence: PE)
  Receive Date: 20140428
  Receipt Date: 20140606
  Transmission Date: 20141212
  Serious: Yes (Other)
  Sender: FDA-Public Use
  Company Number: PE-JNJFOC-20140417304

PATIENT
  Age: 39 Year
  Sex: Female

DRUGS (3)
  1. REMICADE [Suspect]
     Indication: PRODUCT USED FOR UNKNOWN INDICATION
     Route: 042
  2. REMICADE [Suspect]
     Indication: PRODUCT USED FOR UNKNOWN INDICATION
     Route: 042
     Dates: start: 20140528
  3. DEXAMETHASONE [Concomitant]
     Indication: PREMEDICATION
     Route: 042

REACTIONS (6)
  - Dyspnoea [Recovered/Resolved]
  - Agitation [Recovered/Resolved]
  - Infusion related reaction [Recovered/Resolved]
  - Blood pressure decreased [Recovered/Resolved]
  - Vomiting [Recovered/Resolved]
  - Erythema [Recovered/Resolved]
